FAERS Safety Report 9006418 (Version 2)
Quarter: 2013Q2

REPORT INFORMATION
  Report Type: Spontaneous
  Country: BR (occurrence: BR)
  Receive Date: 20130110
  Receipt Date: 20130401
  Transmission Date: 20140414
  Serious: Yes (Other)
  Sender: FDA-Public Use
  Company Number: BR-JNJFOC-20130103413

PATIENT
  Sex: Female
  Weight: 72 kg

DRUGS (5)
  1. XARELTO [Suspect]
     Indication: THROMBOSIS
     Route: 048
     Dates: start: 20121208, end: 20121225
  2. XARELTO [Suspect]
     Indication: CEREBROVASCULAR ACCIDENT
     Route: 048
     Dates: start: 20121208, end: 20121225
  3. PAROXETINE [Concomitant]
     Indication: DEPRESSION
     Route: 048
     Dates: start: 2002
  4. SPLENDIL [Concomitant]
     Indication: HYPERTENSION
     Route: 048
     Dates: start: 2002
  5. SELOKEN (METOPROLOL TARTRATE) [Concomitant]
     Indication: HYPERTENSION
     Route: 048
     Dates: start: 2002

REACTIONS (6)
  - Hepatomegaly [Not Recovered/Not Resolved]
  - Off label use [Unknown]
  - Flatulence [Not Recovered/Not Resolved]
  - Headache [Not Recovered/Not Resolved]
  - Retching [Not Recovered/Not Resolved]
  - Underdose [Unknown]
